FAERS Safety Report 4750185-2 (Version None)
Quarter: 2005Q3

REPORT INFORMATION
  Report Type: 
  Country: None (occurrence: None)
  Receive Date: 20050818
  Receipt Date: 20050805
  Transmission Date: 20060218
  Serious: Yes (Hospitalization)
  Sender: FDA-Public Use
  Company Number: 216726

PATIENT
  Age: 52 Year
  Sex: Male
  Weight: 103 kg

DRUGS (2)
  1. RITUXAN [Suspect]
     Indication: NEPHROPATHY
     Dosage: INTRAVENOUS
     Route: 042
  2. DIURETICS (DIURETICS) [Concomitant]

REACTIONS (4)
  - ATELECTASIS [None]
  - HYPOTENSION [None]
  - PLEURITIC PAIN [None]
  - PNEUMONIA [None]
